FAERS Safety Report 19362470 (Version 1)
Quarter: 2021Q2

REPORT INFORMATION
  Report Type: Other
  Country: PL (occurrence: PL)
  Receive Date: 20210601
  Receipt Date: 20210601
  Transmission Date: 20210717
  Serious: No
  Sender: FDA-Public Use
  Company Number: PL-ROCHE-2840324

PATIENT
  Age: 45 Year
  Sex: Female
  Weight: 95 kg

DRUGS (19)
  1. OCRELIZUMAB. [Suspect]
     Active Substance: OCRELIZUMAB
     Dosage: 250
     Route: 042
     Dates: start: 20200917, end: 20200917
  2. OCRELIZUMAB. [Suspect]
     Active Substance: OCRELIZUMAB
     Dosage: 250
     Route: 042
     Dates: start: 20201001, end: 20201001
  3. EUTHYROX N [Concomitant]
     Active Substance: LEVOTHYROXINE SODIUM
     Indication: PITUITARY TUMOUR REMOVAL
     Route: 048
  4. HEVIRAN [Concomitant]
     Active Substance: ACYCLOVIR
     Indication: PROPHYLAXIS
     Dates: start: 20200917, end: 20200921
  5. SOLU?MEDROL [Concomitant]
     Active Substance: METHYLPREDNISOLONE SODIUM SUCCINATE
     Dosage: ONCE BEFORE?INFUSION
     Route: 042
     Dates: start: 20210331
  6. SOLU?MEDROL [Concomitant]
     Active Substance: METHYLPREDNISOLONE SODIUM SUCCINATE
     Dosage: ONCE BEFORE?INFUSION
     Route: 042
     Dates: start: 20200917
  7. RUTINACEA MAX D3 [Concomitant]
     Dosage: 6 TABLET
     Route: 048
     Dates: start: 20210219, end: 20210228
  8. AMERTIL [Concomitant]
     Active Substance: CETIRIZINE HYDROCHLORIDE
     Route: 048
     Dates: start: 20210331, end: 20210331
  9. SYSTEN?50 [Concomitant]
     Indication: PITUITARY TUMOUR REMOVAL
     Route: 061
  10. ZINC. [Concomitant]
     Active Substance: ZINC
     Route: 048
     Dates: start: 20210219, end: 20210228
  11. PARACETAMOL [Concomitant]
     Active Substance: ACETAMINOPHEN
     Route: 048
     Dates: start: 20200917, end: 20200917
  12. AMERTIL [Concomitant]
     Active Substance: CETIRIZINE HYDROCHLORIDE
     Route: 048
     Dates: start: 20200917, end: 20200917
  13. AMERTIL [Concomitant]
     Active Substance: CETIRIZINE HYDROCHLORIDE
     Route: 048
     Dates: start: 20201001, end: 20201001
  14. PARACETAMOL [Concomitant]
     Active Substance: ACETAMINOPHEN
     Route: 048
     Dates: start: 20201001, end: 20201001
  15. OCRELIZUMAB. [Suspect]
     Active Substance: OCRELIZUMAB
     Dosage: 500
     Route: 042
     Dates: start: 20210331, end: 20210331
  16. PYRALGINA [Concomitant]
     Active Substance: METAMIZOLE MAGNESIUM
     Route: 048
     Dates: start: 20210219, end: 20210223
  17. OCRELIZUMAB. [Suspect]
     Active Substance: OCRELIZUMAB
     Indication: PRIMARY PROGRESSIVE MULTIPLE SCLEROSIS
     Route: 042
  18. PARACETAMOL [Concomitant]
     Active Substance: ACETAMINOPHEN
     Route: 048
     Dates: start: 20210331, end: 20210331
  19. SOLU?MEDROL [Concomitant]
     Active Substance: METHYLPREDNISOLONE SODIUM SUCCINATE
     Dosage: ONCE BEFORE?INFUSION
     Route: 042
     Dates: start: 20201001

REACTIONS (1)
  - COVID-19 [Recovered/Resolved]

NARRATIVE: CASE EVENT DATE: 20210219
